FAERS Safety Report 10496603 (Version 2)
Quarter: 2014Q4

REPORT INFORMATION
  Report Type: Spontaneous
  Country: US (occurrence: US)
  Receive Date: 20141005
  Receipt Date: 20141104
  Transmission Date: 20150528
  Serious: No
  Sender: FDA-Public Use
  Company Number: US-009507513-1409USA012637

PATIENT
  Age: 28 Year
  Sex: Female
  Weight: 58.5 kg

DRUGS (2)
  1. NEXPLANON [Suspect]
     Active Substance: ETONOGESTREL
     Dosage: 68MG/ ONCE EVERY 3 YEARS
     Route: 059
     Dates: start: 20140915
  2. NEXPLANON [Suspect]
     Active Substance: ETONOGESTREL
     Indication: CONTRACEPTION
     Dosage: 68MG/ ONCE EVERY 3 YEARS, LEFT ARM
     Route: 059
     Dates: start: 20140915, end: 20140915

REACTIONS (3)
  - Product quality issue [Unknown]
  - No adverse event [Unknown]
  - Device difficult to use [Recovered/Resolved]

NARRATIVE: CASE EVENT DATE: 20140915
